FAERS Safety Report 13560716 (Version 1)
Quarter: 2017Q2

REPORT INFORMATION
  Report Type: Spontaneous
  Country: GB (occurrence: GB)
  Receive Date: 20170518
  Receipt Date: 20170518
  Transmission Date: 20170830
  Serious: Yes (Hospitalization, Other)
  Sender: FDA-Public Use
  Company Number: GB-MYLANLABS-2017M1030025

PATIENT

DRUGS (5)
  1. TRIMETHOPRIM. [Concomitant]
     Active Substance: TRIMETHOPRIM
     Indication: URINARY TRACT INFECTION
     Route: 065
  2. AMIKACIN [Suspect]
     Active Substance: AMIKACIN
     Indication: NOCARDIOSIS
     Route: 065
  3. CICLOSPORIN [Suspect]
     Active Substance: CYCLOSPORINE
     Indication: COGAN^S SYNDROME
     Dosage: 2 MG/KG/DAY
     Route: 065
  4. PREDNISOLONE. [Suspect]
     Active Substance: PREDNISOLONE
     Indication: COGAN^S SYNDROME
     Dosage: 15 MG/DAY
     Route: 048
  5. MEROPENEM. [Suspect]
     Active Substance: MEROPENEM
     Indication: NOCARDIOSIS
     Route: 042

REACTIONS (5)
  - Chest discomfort [Unknown]
  - Wheezing [Unknown]
  - Abscess limb [Recovered/Resolved]
  - Cough [Unknown]
  - Nocardiosis [Recovered/Resolved]
